FAERS Safety Report 16878784 (Version 1)
Quarter: 2019Q4

REPORT INFORMATION
  Report Type: Spontaneous
  Country: US (occurrence: US)
  Receive Date: 20191002
  Receipt Date: 20191002
  Transmission Date: 20200122
  Serious: Yes (Disabling, Other)
  Sender: FDA-Public Use
  Company Number: US-ALLERGAN-1939348US

PATIENT
  Sex: Female

DRUGS (1)
  1. OZURDEX [Suspect]
     Active Substance: DEXAMETHASONE
     Indication: PRODUCT USED FOR UNKNOWN INDICATION
     Dosage: 0.7 MG, SINGLE
     Route: 031
     Dates: start: 20181106, end: 20181106

REACTIONS (12)
  - Blindness [Unknown]
  - Discomfort [Unknown]
  - Corneal transplant [Unknown]
  - Retinal detachment [Unknown]
  - Product design issue [Unknown]
  - Impaired quality of life [Unknown]
  - Eye injury [Unknown]
  - Emotional disorder [Unknown]
  - Pain [Unknown]
  - Anxiety [Unknown]
  - Manufacturing materials contamination [Unknown]
  - Emotional distress [Unknown]
